FAERS Safety Report 11678359 (Version 1)
Quarter: 2015Q4

REPORT INFORMATION
  Report Type: Spontaneous
  Country: VN (occurrence: VN)
  Receive Date: 20151028
  Receipt Date: 20151028
  Transmission Date: 20160304
  Serious: Yes (Other)
  Sender: FDA-Public Use
  Company Number: PHHY2015VN116039

PATIENT
  Age: 33 Year
  Sex: Male

DRUGS (5)
  1. ALPHA CHYMOTRYPSIN [Concomitant]
     Indication: ANTIINFLAMMATORY THERAPY
     Dosage: 5,000 IU X 2
     Route: 030
     Dates: start: 20150920, end: 20150920
  2. ALPHA CHYMOTRYPSIN [Concomitant]
     Indication: SWELLING
  3. VOLTAREN [Suspect]
     Active Substance: DICLOFENAC SODIUM
     Indication: RHEUMATOID ARTHRITIS
     Dosage: 1 DF, UNK
     Route: 030
     Dates: start: 20150920, end: 20150920
  4. ALPHA CHYMOTRYPSIN [Concomitant]
     Indication: OEDEMA
  5. ALPHA CHYMOTRYPSIN [Concomitant]
     Indication: FLUID RETENTION

REACTIONS (10)
  - Chest discomfort [Recovered/Resolved]
  - Cough [Recovered/Resolved]
  - Dyspnoea [Recovered/Resolved]
  - Urticaria [Recovered/Resolved]
  - Pruritus [Unknown]
  - Rash [Recovered/Resolved]
  - Eyelid oedema [Recovered/Resolved]
  - Blood pressure increased [Recovered/Resolved]
  - Drug hypersensitivity [Recovered/Resolved]
  - Angioedema [Unknown]

NARRATIVE: CASE EVENT DATE: 20150920
